FAERS Safety Report 9636204 (Version 4)
Quarter: 2013Q4

REPORT INFORMATION
  Report Type: Spontaneous
  Country: GB (occurrence: GB)
  Receive Date: 20131021
  Receipt Date: 20131209
  Transmission Date: 20140711
  Serious: Yes (Hospitalization)
  Sender: FDA-Public Use
  Company Number: GB-BRISTOL-MYERS SQUIBB COMPANY-19550409

PATIENT
  Age: 58 Year
  Sex: Female

DRUGS (6)
  1. FORXIGA [Suspect]
     Indication: TYPE 2 DIABETES MELLITUS
     Route: 048
     Dates: start: 20130906
  2. METFORMIN HCL [Suspect]
  3. GLIMEPIRIDE [Suspect]
  4. SITAGLIPTIN PHOSPHATE [Suspect]
  5. BENDROFLUMETHIAZIDE [Concomitant]
  6. SIMVASTATIN [Concomitant]

REACTIONS (1)
  - Diabetic ketoacidosis [Recovering/Resolving]
